FAERS Safety Report 8003267-6 (Version None)
Quarter: 2011Q4

REPORT INFORMATION
  Report Type: 
  Country: None (occurrence: None)
  Receive Date: 20111222
  Receipt Date: 20111219
  Transmission Date: 20120403
  Serious: Yes (Other)
  Sender: FDA-Public Use
  Company Number: PHHY2011CA08945

PATIENT
  Sex: Female

DRUGS (4)
  1. ZOLEDRONOC ACID [Suspect]
     Indication: BONE DISORDER
     Dosage: UNK
     Route: 042
     Dates: start: 20091026
  2. CALCIUM [Concomitant]
  3. ZOLEDRONOC ACID [Suspect]
     Indication: OSTEOPOROSIS
     Dosage: UNK
     Route: 042
     Dates: start: 20101129
  4. VITAMIN D [Concomitant]

REACTIONS (10)
  - SPINAL OSTEOARTHRITIS [None]
  - OSTEOARTHRITIS [None]
  - BONE DENSITY DECREASED [None]
  - GROIN PAIN [None]
  - JOINT CREPITATION [None]
  - CARTILAGE ATROPHY [None]
  - MUSCULOSKELETAL DISCOMFORT [None]
  - ARTHRALGIA [None]
  - BACK PAIN [None]
  - NECK PAIN [None]
